FAERS Safety Report 10077610 (Version 2)
Quarter: 2014Q2

REPORT INFORMATION
  Report Type: Spontaneous
  Country: US (occurrence: US)
  Receive Date: 20140414
  Receipt Date: 20140414
  Transmission Date: 20141212
  Serious: No
  Sender: FDA-Public Use
  Company Number: US-BANPHARM-20131974

PATIENT
  Age: 58 Year
  Sex: Male
  Weight: 81.65 kg

DRUGS (1)
  1. ALEVE LIQUID GELS 220 MG [Suspect]
     Dosage: 2 DF, ONLY ONCE,
     Route: 048
     Dates: start: 20131217, end: 20131217

REACTIONS (2)
  - Pruritus generalised [Not Recovered/Not Resolved]
  - Generalised erythema [Not Recovered/Not Resolved]
